FAERS Safety Report 24383775 (Version 1)
Quarter: 2024Q4

REPORT INFORMATION
  Report Type: Spontaneous
  Country: CN (occurrence: CN)
  Receive Date: 20241001
  Receipt Date: 20241001
  Transmission Date: 20250115
  Serious: Yes (Life-Threatening, Other)
  Sender: JIANGSU HANSOH PHARMACEUTICAL
  Company Number: CN-Jiangsu Hansoh Pharmaceutical Co., Ltd-2162190

PATIENT
  Age: 49 Year
  Sex: Female

DRUGS (3)
  1. DECITABINE [Suspect]
     Active Substance: DECITABINE
     Indication: Acute myeloid leukaemia
     Dates: start: 20240821, end: 20240825
  2. VENETOCLAX [Suspect]
     Active Substance: VENETOCLAX
     Dates: start: 20240821, end: 20240903
  3. CYTARABINE [Suspect]
     Active Substance: CYTARABINE
     Dates: start: 20240821, end: 20240903

REACTIONS (4)
  - Agranulocytosis [Recovering/Resolving]
  - Off label use [Unknown]
  - Haemoglobin decreased [Not Recovered/Not Resolved]
  - Platelet count decreased [Recovering/Resolving]

NARRATIVE: CASE EVENT DATE: 20240902
